FAERS Safety Report 6058349-5 (Version None)
Quarter: 2009Q1

REPORT INFORMATION
  Report Type: 
  Country: None (occurrence: None)
  Receive Date: 20090130
  Receipt Date: 20090122
  Transmission Date: 20090719
  Serious: Yes (Hospitalization)
  Sender: FDA-Public Use
  Company Number: IT-BRISTOL-MYERS SQUIBB COMPANY-14424956

PATIENT
  Age: 70 Year

DRUGS (2)
  1. ERBITUX [Suspect]
     Indication: RECTAL CANCER
     Route: 042
     Dates: start: 20081017, end: 20081031
  2. CAMPTOSAR [Suspect]
     Indication: RECTAL CANCER
     Dates: start: 20081017, end: 20081031

REACTIONS (2)
  - NEUTROPENIA [None]
  - PYREXIA [None]
